FAERS Safety Report 23760781 (Version 2)
Quarter: 2024Q2

REPORT INFORMATION
  Report Type: Report from Study
  Country: LU (occurrence: LU)
  Receive Date: 20240419
  Receipt Date: 20240611
  Transmission Date: 20240716
  Serious: Yes (Hospitalization)
  Sender: FDA-Public Use
  Company Number: LU-ABBVIE-5723196

PATIENT
  Sex: Male

DRUGS (9)
  1. CARBIDOPA\LEVODOPA [Suspect]
     Active Substance: CARBIDOPA\LEVODOPA
     Indication: Parkinson^s disease
     Route: 050
     Dates: start: 20191115
  2. CARBIDOPA\LEVODOPA [Suspect]
     Active Substance: CARBIDOPA\LEVODOPA
     Dosage: MD: 5.0ML, CD: 2.0ML/H, ED: 1.50ML DURING 16 HOURS
     Route: 050
     Dates: start: 20220726, end: 20240425
  3. CARBIDOPA\LEVODOPA [Suspect]
     Active Substance: CARBIDOPA\LEVODOPA
     Dosage: MD: 5.0ML, CD: 1.9ML/H, ED: 1.50ML DURING 16 HOURS
     Route: 050
     Dates: start: 20220208, end: 20220726
  4. CARBIDOPA\LEVODOPA [Suspect]
     Active Substance: CARBIDOPA\LEVODOPA
     Dosage: MD: 5.0ML, CD: 1.9ML/H, ED: 1.50ML DURING 16 HOURS
     Route: 050
     Dates: start: 20240606
  5. CARBIDOPA\LEVODOPA [Suspect]
     Active Substance: CARBIDOPA\LEVODOPA
     Dosage: MD: 5.0ML, CD: 1.9ML/H, ED: 1.50ML DURING 16 HOURS
     Route: 050
     Dates: start: 20240425, end: 20240606
  6. BENSERAZIDE\LEVODOPA [Concomitant]
     Active Substance: BENSERAZIDE\LEVODOPA
     Indication: Product used for unknown indication
     Dosage: FREQUENCY TEXT: 1 CAPSULE AT BEDTIME,?FORM STRENGTH: 125 UNITS
     Route: 048
  7. XADAGO [Concomitant]
     Active Substance: SAFINAMIDE MESYLATE
     Indication: Product used for unknown indication
     Dosage: FORM STRENGTH: 100 MILLIGRAM, FREQUENCY TEXT: 1 TABLET IN THE MORNING
     Route: 048
  8. REQUIP [Concomitant]
     Active Substance: ROPINIROLE HYDROCHLORIDE
     Indication: Product used for unknown indication
     Dosage: FORM STRENGTH 8 MILLIGRAM
  9. SINEMET [Concomitant]
     Active Substance: CARBIDOPA\LEVODOPA
     Indication: Product used for unknown indication
     Dosage: TIME INTERVAL: 0.33333333 DAYS: FORM STRENGTH: 125,  FORM STRENGTH UNITS: UNKNOWN
     Route: 048

REACTIONS (4)
  - Fall [Unknown]
  - Stoma site discharge [Unknown]
  - Device dislocation [Recovered/Resolved]
  - Stoma site discharge [Recovered/Resolved]
